FAERS Safety Report 10341158 (Version 1)
Quarter: 2014Q3

REPORT INFORMATION
  Report Type: Spontaneous
  Country: CH (occurrence: CH)
  Receive Date: 20140724
  Receipt Date: 20140724
  Transmission Date: 20150326
  Serious: Yes (Hospitalization)
  Sender: FDA-Public Use
  Company Number: CH-SA-2014SA095679

PATIENT
  Age: 59 Year
  Sex: Female
  Weight: 78 kg

DRUGS (12)
  1. CALCIMAGON [Concomitant]
  2. LASIX [Suspect]
     Active Substance: FUROSEMIDE
     Indication: PULMONARY HYPERTENSION
     Route: 048
     Dates: end: 20140617
  3. REMERON [Concomitant]
     Active Substance: MIRTAZAPINE
  4. PANTOZOL [Concomitant]
     Active Substance: PANTOPRAZOLE SODIUM
  5. FRAGMIN [Concomitant]
     Active Substance: DALTEPARIN SODIUM
  6. COLISTIN [Interacting]
     Active Substance: COLISTIN
     Indication: PSEUDOMONAL SEPSIS
     Dosage: DOSE- 3 MIU, DAILY DOSE- 9 MIU?FORM- TABLETS, TONGUE SOLUBLE
     Route: 041
     Dates: start: 20140613, end: 20140617
  7. MAGNESIOCARD [Concomitant]
     Active Substance: MAGNESIUM ASPARTATE HYDROCHLORIDE
  8. OBRACIN [Interacting]
     Active Substance: TOBRAMYCIN
     Indication: PSEUDOMONAL SEPSIS
     Dosage: FORM- VIALS
     Route: 041
     Dates: start: 20140613, end: 20140617
  9. ALDACTONE [Interacting]
     Active Substance: SPIRONOLACTONE
     Indication: PULMONARY HYPERTENSION
     Route: 048
     Dates: end: 20140617
  10. DUROGESIC [Concomitant]
     Active Substance: FENTANYL
  11. SEROPRAM [Concomitant]
     Active Substance: CITALOPRAM HYDROBROMIDE
  12. TEMESTA [Concomitant]
     Active Substance: LORAZEPAM

REACTIONS (6)
  - Off label use [Unknown]
  - Drug interaction [Unknown]
  - Renal failure acute [Recovering/Resolving]
  - Drug level increased [Recovered/Resolved]
  - Tubulointerstitial nephritis [Unknown]
  - Hyperkalaemia [Recovered/Resolved]

NARRATIVE: CASE EVENT DATE: 201406
